FAERS Safety Report 23958837 (Version 9)
Quarter: 2025Q3

REPORT INFORMATION
  Report Type: Report from Study
  Country: US (occurrence: US)
  Receive Date: 20240611
  Receipt Date: 20250926
  Transmission Date: 20251020
  Serious: Yes (Other)
  Sender: ABBVIE
  Company Number: US-ABBVIE-5789162

PATIENT
  Age: 70 Year
  Sex: Female

DRUGS (2)
  1. SKYRIZI [Suspect]
     Active Substance: RISANKIZUMAB-RZAA
     Indication: Psoriasis
     Route: 058
  2. SKYRIZI [Suspect]
     Active Substance: RISANKIZUMAB-RZAA
     Route: 058
     Dates: start: 20231226

REACTIONS (10)
  - Squamous cell carcinoma [Recovering/Resolving]
  - Rash papular [Recovering/Resolving]
  - Rash pruritic [Recovering/Resolving]
  - Drug ineffective [Recovering/Resolving]
  - Blister [Unknown]
  - Blister rupture [Unknown]
  - Psoriasis [Recovering/Resolving]
  - Arthritis [Not Recovered/Not Resolved]
  - Stress [Not Recovered/Not Resolved]
  - Skin exfoliation [Unknown]

NARRATIVE: CASE EVENT DATE: 20240501
